FAERS Safety Report 4771682-X (Version None)
Quarter: 2005Q3

REPORT INFORMATION
  Report Type: 
  Country: None (occurrence: None)
  Receive Date: 20050913
  Receipt Date: 20050823
  Transmission Date: 20060218
  Serious: Yes (Hospitalization)
  Sender: FDA-Public Use
  Company Number: 2005BH001337

PATIENT

DRUGS (1)
  1. ALBUMIN (HUMAN) [Suspect]
     Indication: ISCHAEMIC STROKE

REACTIONS (1)
  - PLEURAL EFFUSION [None]
